FAERS Safety Report 5504725-6 (Version None)
Quarter: 2007Q4

REPORT INFORMATION
  Report Type: 
  Country: None (occurrence: None)
  Receive Date: 20071031
  Receipt Date: 20071026
  Transmission Date: 20080405
  Serious: Yes (Disabling)
  Sender: FDA-Public Use
  Company Number: OSCN-NO-0710L-0409

PATIENT
  Age: 68 Year
  Sex: Male

DRUGS (1)
  1. OMNISCAN [Suspect]
     Indication: VASCULAR STENOSIS
     Dosage: SINGLE DOSE, I.V.
     Route: 042

REACTIONS (10)
  - ARTHRALGIA [None]
  - CHRONIC OBSTRUCTIVE PULMONARY DISEASE [None]
  - DRUG INEFFECTIVE [None]
  - HOMOCYSTINAEMIA [None]
  - HYPERCOAGULATION [None]
  - NEPHROGENIC SYSTEMIC FIBROSIS [None]
  - POLYNEUROPATHY [None]
  - RESTRICTIVE PULMONARY DISEASE [None]
  - SKIN DISORDER [None]
  - ULCER [None]
